FAERS Safety Report 14693696 (Version 2)
Quarter: 2018Q2

REPORT INFORMATION
  Report Type: Report from Study
  Country: US (occurrence: US)
  Receive Date: 20180329
  Receipt Date: 20180405
  Transmission Date: 20180711
  Serious: Yes (Death, Hospitalization)
  Sender: FDA-Public Use
  Company Number: US-JNJFOC-20180309384

PATIENT
  Age: 81 Year
  Sex: Male

DRUGS (16)
  1. TORADOL [Concomitant]
     Active Substance: KETOROLAC TROMETHAMINE
  2. TRAMADOL. [Concomitant]
     Active Substance: TRAMADOL
  3. LASIX [Concomitant]
     Active Substance: FUROSEMIDE
  4. ROBINUL [Concomitant]
     Active Substance: GLYCOPYRROLATE
  5. ATIVAN [Concomitant]
     Active Substance: LORAZEPAM
  6. IBRUTINIB [Suspect]
     Active Substance: IBRUTINIB
     Indication: MYELODYSPLASTIC SYNDROME
     Route: 048
     Dates: start: 20180214, end: 20180228
  7. APRESOLINE HYDROCHLORIDE [Concomitant]
     Active Substance: HYDRALAZINE HYDROCHLORIDE
  8. NEURONTIN [Concomitant]
     Active Substance: GABAPENTIN
  9. MEGACE [Concomitant]
     Active Substance: MEGESTROL ACETATE
  10. FLOMAX [Concomitant]
     Active Substance: TAMSULOSIN HYDROCHLORIDE
  11. LEVAQUIN [Concomitant]
     Active Substance: LEVOFLOXACIN
     Indication: NEUTROPENIC INFECTION
  12. FLEXERIL [Concomitant]
     Active Substance: CYCLOBENZAPRINE HYDROCHLORIDE
  13. GLUCAGON. [Concomitant]
     Active Substance: GLUCAGON
  14. AZACITIDINE. [Suspect]
     Active Substance: AZACITIDINE
     Indication: MYELODYSPLASTIC SYNDROME
     Dosage: 143 MG, DAYS 1-7
     Route: 042
     Dates: start: 20180214
  15. FENTANYL. [Concomitant]
     Active Substance: FENTANYL
  16. DIFLUCAN [Concomitant]
     Active Substance: FLUCONAZOLE
     Indication: NEUTROPENIC INFECTION

REACTIONS (5)
  - Acute kidney injury [Unknown]
  - Myelodysplastic syndrome [Fatal]
  - Delirium [Unknown]
  - Pulmonary oedema [Unknown]
  - Febrile neutropenia [Unknown]

NARRATIVE: CASE EVENT DATE: 20180301
